FAERS Safety Report 5700347-2 (Version None)
Quarter: 2008Q2

REPORT INFORMATION
  Report Type: 
  Country: None (occurrence: None)
  Receive Date: 20080410
  Receipt Date: 20080403
  Transmission Date: 20081010
  Serious: Yes (Other)
  Sender: FDA-Public Use
  Company Number: US-ALLERGAN-0803968US

PATIENT
  Sex: Female

DRUGS (2)
  1. SANCTURA XR [Suspect]
     Indication: DRUG USE FOR UNKNOWN INDICATION
  2. COMBIVENT [Concomitant]
     Indication: ASTHMA

REACTIONS (1)
  - ASTHMA [None]
